FAERS Safety Report 7055220-7 (Version None)
Quarter: 2010Q4

REPORT INFORMATION
  Report Type: 
  Country: None (occurrence: None)
  Receive Date: 20101021
  Receipt Date: 20101014
  Transmission Date: 20110411
  Serious: Yes (Other)
  Sender: FDA-Public Use
  Company Number: IL-GENZYME-CERD-1000024

PATIENT

DRUGS (1)
  1. CEREDASE [Suspect]
     Indication: GAUCHER'S DISEASE
     Dosage: 30 U/KG, Q3W
     Route: 042
     Dates: start: 19920501

REACTIONS (2)
  - ABORTION INDUCED [None]
  - PULMONARY HYPERTENSION [None]
